FAERS Safety Report 8507570-2 (Version None)
Quarter: 2012Q3

REPORT INFORMATION
  Report Type: 
  Country: None (occurrence: None)
  Receive Date: 20120713
  Receipt Date: 20120703
  Transmission Date: 20120928
  Serious: Yes (Other)
  Sender: FDA-Public Use
  Company Number: US-BIOGENIDEC-2012BI019211

PATIENT
  Age: 52 Year
  Sex: Female

DRUGS (1)
  1. AVONEX [Suspect]
     Indication: MULTIPLE SCLEROSIS
     Route: 030
     Dates: start: 19970101

REACTIONS (7)
  - ISCHAEMIC NEUROPATHY [None]
  - BLINDNESS [None]
  - HEADACHE [None]
  - OCULAR DISCOMFORT [None]
  - MYOPIA [None]
  - PHOTOPHOBIA [None]
  - VISUAL FIELD DEFECT [None]
